FAERS Safety Report 12978816 (Version 1)
Quarter: 2016Q4

REPORT INFORMATION
  Report Type: Spontaneous
  Country: IT (occurrence: IT)
  Receive Date: 20161128
  Receipt Date: 20161128
  Transmission Date: 20170207
  Serious: Yes (Hospitalization)
  Sender: FDA-Public Use
  Company Number: IT-JNJFOC-20161127045

PATIENT
  Age: 0 Day
  Sex: Female

DRUGS (1)
  1. HALOPERIDOL. [Suspect]
     Active Substance: HALOPERIDOL
     Indication: NEUROPSYCHIATRIC SYMPTOMS
     Route: 048
     Dates: start: 20160901, end: 20161013

REACTIONS (2)
  - Extrapyramidal disorder [Recovered/Resolved]
  - Sopor [Recovered/Resolved]

NARRATIVE: CASE EVENT DATE: 20161013
